FAERS Safety Report 8991422 (Version 3)
Quarter: 2013Q1

REPORT INFORMATION
  Report Type: Spontaneous
  Country: US (occurrence: US)
  Receive Date: 20121228
  Receipt Date: 20130325
  Transmission Date: 20140127
  Serious: No
  Sender: FDA-Public Use
  Company Number: US-009507513-1212USA009718

PATIENT
  Age: 18 None
  Sex: Female
  Weight: 63.49 kg

DRUGS (3)
  1. NEXPLANON [Suspect]
     Indication: CONTRACEPTION
     Dosage: 1 ROD
     Route: 059
     Dates: start: 20120926, end: 20121206
  2. NEXPLANON [Suspect]
     Dosage: UNK
     Route: 059
     Dates: end: 20120926
  3. NEXPLANON [Suspect]
     Dosage: UNK
     Dates: start: 20121212

REACTIONS (4)
  - Menstruation delayed [Recovered/Resolved]
  - Implant site infection [Recovered/Resolved]
  - Implant site bruising [Recovering/Resolving]
  - Medical device complication [Unknown]
